FAERS Safety Report 6759864-9 (Version None)
Quarter: 2010Q2

REPORT INFORMATION
  Report Type: 
  Country: None (occurrence: None)
  Receive Date: 20100608
  Receipt Date: 20100412
  Transmission Date: 20101027
  Serious: No
  Sender: FDA-Public Use
  Company Number: DE-NOVOPROD-301709

PATIENT
  Sex: Male
  Weight: 100.5 kg

DRUGS (7)
  1. LIRAGLUTIDE FLEXPEN [Suspect]
     Indication: TYPE 2 DIABETES MELLITUS
     Dosage: 1.8 MG/ML, QD
     Route: 058
     Dates: start: 20090525, end: 20091205
  2. METFORMIN [Suspect]
     Indication: TYPE 2 DIABETES MELLITUS
     Dosage: 2000 MG, QD
     Dates: start: 19980101
  3. SIMVASTATIN [Concomitant]
     Dosage: UNK
     Route: 048
     Dates: start: 19900101
  4. RAMIPRIL [Concomitant]
     Dosage: UNK
     Route: 048
     Dates: start: 20080901
  5. AMLODIPIN                          /00972401/ [Concomitant]
     Dosage: UNK
     Route: 048
     Dates: start: 20090226
  6. NEBIVOLOL HCL [Concomitant]
     Dosage: UNK
     Route: 048
     Dates: start: 20080901
  7. ASPIRIN [Concomitant]
     Dosage: UNK
     Route: 048
     Dates: start: 20000101

REACTIONS (1)
  - CHOLELITHIASIS [None]
